FAERS Safety Report 24072134 (Version 4)
Quarter: 2024Q3

REPORT INFORMATION
  Report Type: Report from Study
  Country: US (occurrence: US)
  Receive Date: 20240710
  Receipt Date: 20240802
  Transmission Date: 20241016
  Serious: Yes (Hospitalization, Other)
  Sender: ABBVIE
  Company Number: US-ABBVIE-5830890

PATIENT
  Age: 59 Year
  Sex: Female
  Weight: 48.534 kg

DRUGS (2)
  1. SKYRIZI [Suspect]
     Active Substance: RISANKIZUMAB-RZAA
     Indication: Crohn^s disease
     Dosage: FORM STRENGTH: 360 MILLIGRAM
     Route: 058
     Dates: start: 20230927
  2. SKYRIZI [Suspect]
     Active Substance: RISANKIZUMAB-RZAA
     Indication: Crohn^s disease
     Dosage: FORM STRENGTH: 600 MILLIGRAM
     Route: 058
     Dates: start: 20230629, end: 20230830

REACTIONS (9)
  - Small intestinal obstruction [Recovered/Resolved]
  - Urinary tract infection [Recovered/Resolved]
  - Feeding disorder [Recovering/Resolving]
  - Weight decreased [Not Recovered/Not Resolved]
  - Intestinal obstruction [Recovering/Resolving]
  - Device issue [Not Recovered/Not Resolved]
  - Crohn^s disease [Recovered/Resolved]
  - Injection site erythema [Recovered/Resolved]
  - Adhesion [Not Recovered/Not Resolved]

NARRATIVE: CASE EVENT DATE: 20231001
